FAERS Safety Report 10560971 (Version 1)
Quarter: 2014Q4

REPORT INFORMATION
  Report Type: Spontaneous
  Country: FR (occurrence: FR)
  Receive Date: 20141103
  Receipt Date: 20141103
  Transmission Date: 20150529
  Serious: Yes (Hospitalization)
  Sender: FDA-Public Use
  Company Number: FR-PFIZER INC-2014299006

PATIENT
  Age: 71 Year
  Sex: Male

DRUGS (10)
  1. HAVLANE [Concomitant]
     Active Substance: LOPRAZOLAM
  2. HOLOXAN [Suspect]
     Active Substance: IFOSFAMIDE
     Indication: RENAL NEOPLASM
     Dosage: 1ST COURSE
     Route: 042
     Dates: start: 20140728, end: 20140730
  3. CRESTOR [Concomitant]
     Active Substance: ROSUVASTATIN CALCIUM
  4. DOXORUBICIN HCL [Suspect]
     Active Substance: DOXORUBICIN HYDROCHLORIDE
     Indication: RENAL NEOPLASM
     Dosage: 1ST COURSE
     Route: 042
     Dates: start: 20140728, end: 20140730
  5. SEROPLEX [Concomitant]
     Active Substance: ESCITALOPRAM OXALATE
  6. KARDEGIC [Concomitant]
     Active Substance: ASPIRIN LYSINE
  7. DOXORUBICIN HCL [Suspect]
     Active Substance: DOXORUBICIN HYDROCHLORIDE
     Dosage: 2ND COURSE
     Route: 042
     Dates: start: 20140904
  8. ALPRAZOLAM. [Concomitant]
     Active Substance: ALPRAZOLAM
  9. HOLOXAN [Suspect]
     Active Substance: IFOSFAMIDE
     Dosage: 2ND COURSE
     Route: 042
     Dates: start: 20140904
  10. TEMERIT [Concomitant]
     Active Substance: NEBIVOLOL

REACTIONS (3)
  - Acute kidney injury [Not Recovered/Not Resolved]
  - Fanconi syndrome [Not Recovered/Not Resolved]
  - Anaemia [Unknown]

NARRATIVE: CASE EVENT DATE: 20140920
